FAERS Safety Report 4543856-4 (Version None)
Quarter: 2004Q4

REPORT INFORMATION
  Report Type: 
  Country: None (occurrence: None)
  Receive Date: 20041229
  Receipt Date: 20041229
  Transmission Date: 20050328
  Serious: Yes (Other)
  Sender: FDA-Public Use
  Company Number: None

PATIENT
  Sex: Female

DRUGS (2)
  1. XALATAN [Suspect]
     Indication: GLAUCOMA
     Dosage: 1 GTT HSOU OPTH SOLN
     Route: 047
     Dates: start: 20011004, end: 20011011
  2. ALPHAGAN [Suspect]
     Indication: GLAUCOMA
     Dosage: 1 GTT BID OU OPTH SOLN
     Route: 047
     Dates: start: 20011004, end: 20011011

REACTIONS (1)
  - DRUG INEFFECTIVE [None]
